FAERS Safety Report 4354502-7 (Version None)
Quarter: 2004Q2

REPORT INFORMATION
  Report Type: 
  Country: None (occurrence: None)
  Receive Date: 20040503
  Receipt Date: 20040416
  Transmission Date: 20050107
  Serious: Yes (Disabling, Other)
  Sender: FDA-Public Use
  Company Number: MYAM000009

PATIENT
  Age: 36 Year
  Sex: Male

DRUGS (2)
  1. ETHAMBUTOL HCL [Suspect]
     Indication: PULMONARY TUBERCULOSIS
     Dosage: 25 MG/KG DAILY ORAL
     Route: 048
  2. ISONIAZID [Concomitant]

REACTIONS (5)
  - BLINDNESS UNILATERAL [None]
  - COLOUR VISION TESTS ABNORMAL [None]
  - OPTIC ATROPHY [None]
  - PITUITARY TUMOUR BENIGN [None]
  - VISUAL ACUITY REDUCED [None]
